FAERS Safety Report 23269161 (Version 2)
Quarter: 2023Q4

REPORT INFORMATION
  Report Type: Spontaneous
  Country: US (occurrence: US)
  Receive Date: 20231207
  Receipt Date: 20231207
  Transmission Date: 20240110
  Serious: No
  Sender: FDA-Public Use
  Company Number: AP-2023-US-5352

PATIENT
  Sex: Female

DRUGS (1)
  1. CROMOLYN SODIUM [Suspect]
     Active Substance: CROMOLYN SODIUM
     Indication: Mast cell activation syndrome
     Dosage: 4 TIMES A DAY
     Route: 048

REACTIONS (3)
  - Pruritus [Unknown]
  - Flushing [Unknown]
  - Alopecia [Unknown]

NARRATIVE: CASE EVENT DATE: 20230401
